FAERS Safety Report 18520368 (Version 6)
Quarter: 2021Q3

REPORT INFORMATION
  Report Type: Other
  Country: US (occurrence: US)
  Receive Date: 20201118
  Receipt Date: 20210902
  Transmission Date: 20211014
  Serious: Yes (Hospitalization, Other)
  Sender: FDA-Public Use
  Company Number: US-ROCHE-2712471

PATIENT
  Age: 75 Year
  Sex: Female
  Weight: 82.63 kg

DRUGS (10)
  1. ACTEMRA [Suspect]
     Active Substance: TOCILIZUMAB
  2. ACTEMRA [Suspect]
     Active Substance: TOCILIZUMAB
     Indication: POLYMYALGIA RHEUMATICA
  3. METHOCARBAMOL. [Concomitant]
     Active Substance: METHOCARBAMOL
     Indication: MUSCULOSKELETAL PAIN
  4. INFLUENZA VACCINE [Concomitant]
     Active Substance: INFLUENZA VIRUS VACCINE
  5. ACTEMRA [Suspect]
     Active Substance: TOCILIZUMAB
     Indication: GIANT CELL ARTERITIS
     Dosage: INJECT 162MG SUBCUTANEOUSLY EVERY 14 DAY(S)
     Route: 058
  6. RECLAST [Suspect]
     Active Substance: ZOLEDRONIC ACID
     Indication: PRODUCT USED FOR UNKNOWN INDICATION
     Route: 065
  7. PREDNISONE. [Concomitant]
     Active Substance: PREDNISONE
     Dates: end: 20210802
  8. COVID?19 VACCINE [Concomitant]
  9. TYLENOL [Concomitant]
     Active Substance: ACETAMINOPHEN
     Indication: MUSCULOSKELETAL PAIN
  10. ACTEMRA [Suspect]
     Active Substance: TOCILIZUMAB

REACTIONS (15)
  - Muscle strain [Unknown]
  - Weight increased [Unknown]
  - Fatigue [Unknown]
  - Ill-defined disorder [Unknown]
  - Contusion [Unknown]
  - Hypotension [Unknown]
  - Osteoporosis [Unknown]
  - Hypertension [Unknown]
  - Pain [Unknown]
  - Loss of consciousness [Unknown]
  - Muscle spasms [Unknown]
  - Fracture [Unknown]
  - Concussion [Unknown]
  - Cough [Unknown]
  - Back disorder [Unknown]

NARRATIVE: CASE EVENT DATE: 20201023
